FAERS Safety Report 10480025 (Version 2)
Quarter: 2014Q3

REPORT INFORMATION
  Report Type: Spontaneous
  Country: US (occurrence: US)
  Receive Date: 20140929
  Receipt Date: 20140929
  Transmission Date: 20150326
  Serious: Yes (Hospitalization, Other)
  Sender: FDA-Public Use
  Company Number: US-AUROBINDO-AUR-APL-2014-09055

PATIENT
  Age: 50 Year
  Sex: Female
  Weight: 105 kg

DRUGS (17)
  1. LORAZEPAM. [Concomitant]
     Active Substance: LORAZEPAM
     Indication: PANIC DISORDER
     Dosage: 3 MG, DAILY
     Route: 048
     Dates: start: 2011
  2. POTASSIUM [Concomitant]
     Active Substance: POTASSIUM
     Indication: MEDICAL DIET
     Dosage: 99 MG, EVERY OTHER DAY
     Route: 048
     Dates: start: 20140818
  3. HYDROXYZINE PAMOATE. [Concomitant]
     Active Substance: HYDROXYZINE PAMOATE
     Indication: HISTAMINE ABNORMAL
     Dosage: 25 MG, AS NECESSARY
     Route: 048
  4. NEXIUM [Concomitant]
     Active Substance: ESOMEPRAZOLE MAGNESIUM
     Indication: PROPHYLAXIS
     Dosage: 20 MG, ONCE A DAY
     Route: 048
     Dates: start: 20120803, end: 20130422
  5. LEVOTHYROXINE [Concomitant]
     Active Substance: LEVOTHYROXINE
     Indication: HYPOTHYROIDISM
     Dosage: 0.175 MG, DAILY
     Route: 048
     Dates: start: 1998
  6. VICODIN [Concomitant]
     Active Substance: ACETAMINOPHEN\HYDROCODONE BITARTRATE
     Indication: ARTHRITIS
     Dosage: 5/325MG, AS NECESSARY
     Route: 048
     Dates: start: 20130901
  7. GEODON [Concomitant]
     Active Substance: ZIPRASIDONE HYDROCHLORIDE\ZIPRASIDONE MESYLATE
     Dosage: 40 MG, TWO TIMES A DAY
     Route: 048
     Dates: start: 2006
  8. LOSARTAN [Suspect]
     Active Substance: LOSARTAN
     Indication: HYPERTENSION
     Dosage: 100 MG, EVERY NIGHT AT BED TIME
     Route: 048
     Dates: start: 2011, end: 20140729
  9. JANUVIA [Suspect]
     Active Substance: SITAGLIPTIN PHOSPHATE
     Indication: TYPE 2 DIABETES MELLITUS
     Dosage: 100 MG, EVERY NIGHT AT BED TIME
     Route: 048
     Dates: start: 20121204
  10. GEODON [Concomitant]
     Active Substance: ZIPRASIDONE HYDROCHLORIDE\ZIPRASIDONE MESYLATE
     Indication: BIPOLAR DISORDER
     Dosage: 80 MG, TWO TIMES A DAY
     Route: 048
     Dates: start: 2003
  11. LAMICTAL [Concomitant]
     Active Substance: LAMOTRIGINE
     Indication: BIPOLAR DISORDER
     Dosage: 100 MG, DAILY
     Route: 048
     Dates: start: 2003
  12. ABILIFY [Concomitant]
     Active Substance: ARIPIPRAZOLE
     Indication: SCHIZOAFFECTIVE DISORDER
     Dosage: 15 MG, DAILY
     Route: 048
     Dates: start: 20140814
  13. METOPROLOL [Suspect]
     Active Substance: METOPROLOL
     Indication: ARRHYTHMIA
     Dosage: 50 MG, EVERY NIGHT AT BED TIME
     Route: 048
     Dates: start: 2011, end: 20140729
  14. ASPIRIN. [Concomitant]
     Active Substance: ASPIRIN
     Indication: PROPHYLAXIS
     Dosage: 81 MG, DAILY
     Route: 048
     Dates: start: 20140801
  15. FUROSEMIDE. [Concomitant]
     Active Substance: FUROSEMIDE
     Indication: HYPERTENSION
     Dosage: 20 MG, EVERY OTHER DAY
     Route: 048
     Dates: start: 20140801
  16. PRISTIQ EXTENDED RELEASE [Concomitant]
     Active Substance: DESVENLAFAXINE SUCCINATE
     Indication: DEPRESSION
     Dosage: 40 MG, DAILY
     Route: 048
     Dates: start: 201201
  17. TYLENOL [Concomitant]
     Active Substance: ACETAMINOPHEN
     Indication: ARTHRITIS
     Dosage: 1500 MG, DAILY
     Route: 048
     Dates: start: 20130423

REACTIONS (7)
  - Hypovolaemia [Unknown]
  - Renal failure acute [Recovered/Resolved]
  - Dizziness [Recovered/Resolved]
  - Urinary tract infection [Recovered/Resolved]
  - Dehydration [Recovered/Resolved]
  - Presyncope [Recovered/Resolved]
  - Hypotension [Recovered/Resolved]

NARRATIVE: CASE EVENT DATE: 20140729
